FAERS Safety Report 9412819 (Version 1)
Quarter: 2013Q3

REPORT INFORMATION
  Report Type: Spontaneous
  Country: US (occurrence: US)
  Receive Date: 20130722
  Receipt Date: 20130722
  Transmission Date: 20140515
  Serious: No
  Sender: FDA-Public Use
  Company Number: US-BAYER-2013-088179

PATIENT
  Age: 54 Year
  Sex: Male

DRUGS (4)
  1. STAXYN (FDT/ODT) [Suspect]
     Indication: ERECTILE DYSFUNCTION
     Dosage: 10 MG, UNK
     Route: 048
     Dates: start: 20130710, end: 20130713
  2. ACIPHEX [Concomitant]
  3. CABERGOLINE [Concomitant]
  4. FISH OIL [Concomitant]

REACTIONS (2)
  - Sensory loss [None]
  - Drug ineffective [None]
